FAERS Safety Report 5883994-7 (Version None)
Quarter: 2008Q3

REPORT INFORMATION
  Report Type: 
  Country: None (occurrence: None)
  Receive Date: 20080915
  Receipt Date: 20080822
  Transmission Date: 20090109
  Serious: Yes (Other)
  Sender: FDA-Public Use
  Company Number: FR-ROCHE-585370

PATIENT
  Sex: Female

DRUGS (1)
  1. LARIAM [Suspect]
     Indication: DRUG USE FOR UNKNOWN INDICATION
     Dosage: DOSE REPORTED AS 250 MG/WEE
     Route: 065
     Dates: start: 20080720

REACTIONS (1)
  - GAMMA-GLUTAMYLTRANSFERASE INCREASED [None]
